FAERS Safety Report 9529381 (Version 1)
Quarter: 2013Q3

REPORT INFORMATION
  Report Type: Spontaneous
  Country: US (occurrence: US)
  Receive Date: 20130917
  Receipt Date: 20130917
  Transmission Date: 20140515
  Serious: No
  Sender: FDA-Public Use
  Company Number: US-TEVA-429199USA

PATIENT
  Sex: 0

DRUGS (1)
  1. LEVETIRACETAM [Suspect]

REACTIONS (2)
  - Drug ineffective [Unknown]
  - Medication residue present [Unknown]
